FAERS Safety Report 10729165 (Version 3)
Quarter: 2016Q1

REPORT INFORMATION
  Report Type: Spontaneous
  Country: IT (occurrence: IT)
  Receive Date: 20150122
  Receipt Date: 20160318
  Transmission Date: 20160525
  Serious: Yes (Death)
  Sender: FDA-Public Use
  Company Number: IT-ROCHE-1524128

PATIENT
  Age: 45 Year
  Sex: Female

DRUGS (1)
  1. ROCEFIN [Suspect]
     Active Substance: CEFTRIAXONE SODIUM
     Indication: PNEUMONIA
     Route: 030
     Dates: start: 20150107, end: 20150107

REACTIONS (3)
  - Pneumonia [Fatal]
  - Pyrexia [Fatal]
  - Delirium [Fatal]

NARRATIVE: CASE EVENT DATE: 20150107
